FAERS Safety Report 18602167 (Version 2)
Quarter: 2021Q1

REPORT INFORMATION
  Report Type: Report from Study
  Country: US (occurrence: US)
  Receive Date: 20201210
  Receipt Date: 20210202
  Transmission Date: 20210419
  Serious: No
  Sender: FDA-Public Use
  Company Number: NVSC2020US329140

PATIENT
  Sex: Male
  Weight: 111.11 kg

DRUGS (1)
  1. ENTRESTO [Suspect]
     Active Substance: SACUBITRIL\VALSARTAN
     Indication: PRODUCT USED FOR UNKNOWN INDICATION
     Dosage: 100 MG, BID(49/51 MG)
     Route: 048
     Dates: start: 20200903

REACTIONS (2)
  - Nasopharyngitis [Unknown]
  - Weight decreased [Unknown]
